FAERS Safety Report 5500640-2 (Version None)
Quarter: 2007Q4

REPORT INFORMATION
  Report Type: 
  Country: None (occurrence: None)
  Receive Date: 20071029
  Receipt Date: 20071019
  Transmission Date: 20080405
  Serious: Yes (Death, Other)
  Sender: FDA-Public Use
  Company Number: US-WYE-H00829007

PATIENT
  Sex: Female

DRUGS (1)
  1. CONJUGATED ESTROGENS [Suspect]
     Dosage: UNKNOWN
     Route: 048

REACTIONS (1)
  - BREAST CANCER [None]
